FAERS Safety Report 18117132 (Version 2)
Quarter: 2020Q3

REPORT INFORMATION
  Report Type: Report from Study
  Country: SE (occurrence: SE)
  Receive Date: 20200805
  Receipt Date: 20200818
  Transmission Date: 20201103
  Serious: Yes (Death)
  Sender: FDA-Public Use
  Company Number: SE-FERRINGPH-2020FE05041

PATIENT
  Age: 32 Year
  Sex: Male

DRUGS (1)
  1. SOMATROPIN. [Suspect]
     Active Substance: SOMATROPIN
     Indication: SHORT STATURE
     Dosage: UNK
     Route: 065

REACTIONS (3)
  - Product use in unapproved indication [Unknown]
  - Off label use [Unknown]
  - Cerebral haemorrhage [Fatal]
